FAERS Safety Report 5017199-9 (Version None)
Quarter: 2006Q2

REPORT INFORMATION
  Report Type: 
  Country: None (occurrence: None)
  Receive Date: 20060602
  Receipt Date: 20060526
  Transmission Date: 20061013
  Serious: Yes (Hospitalization)
  Sender: FDA-Public Use
  Company Number: US-ABBOTT-06P-163-0334303-00

PATIENT
  Age: 43 Year
  Sex: Male

DRUGS (2)
  1. DEPAKOTE [Suspect]
     Indication: CONVULSION
     Route: 048
  2. CLOZAPINE [Suspect]
     Indication: DRUG USE FOR UNKNOWN INDICATION
     Route: 048
     Dates: start: 20060512

REACTIONS (4)
  - AGGRESSION [None]
  - AGRANULOCYTOSIS [None]
  - LEUKOPENIA [None]
  - THROMBOCYTOPENIA [None]
